FAERS Safety Report 22634270 (Version 1)
Quarter: 2023Q2

REPORT INFORMATION
  Report Type: Spontaneous
  Country: CN (occurrence: CN)
  Receive Date: 20230623
  Receipt Date: 20230623
  Transmission Date: 20230721
  Serious: Yes (Disabling, Other)
  Sender: FDA-Public Use
  Company Number: CN-009507513-2306CHN009654

PATIENT
  Age: 76 Year
  Sex: Male
  Weight: 71 kg

DRUGS (1)
  1. CANCIDAS [Suspect]
     Active Substance: CASPOFUNGIN ACETATE
     Indication: Pyrexia
     Dosage: 50 MG, QD
     Route: 041
     Dates: start: 20230118, end: 20230203

REACTIONS (4)
  - Liver injury [Recovering/Resolving]
  - Pyrexia [Unknown]
  - Chest discomfort [Unknown]
  - Product use in unapproved indication [Unknown]

NARRATIVE: CASE EVENT DATE: 20230101
